FAERS Safety Report 8902169 (Version 5)
Quarter: 2014Q2

REPORT INFORMATION
  Report Type: Spontaneous
  Country: US (occurrence: US)
  Receive Date: 20121112
  Receipt Date: 20140429
  Transmission Date: 20141212
  Serious: Yes (Disabling)
  Sender: FDA-Public Use
  Company Number: US-009507513-1211USA003015

PATIENT
  Sex: Male
  Weight: 108.84 kg

DRUGS (1)
  1. PROPECIA [Suspect]
     Indication: ALOPECIA
     Dosage: 1 MG, QD
     Route: 048
     Dates: start: 20040717, end: 2010

REACTIONS (17)
  - Male sexual dysfunction [Unknown]
  - Anxiety [Not Recovered/Not Resolved]
  - Libido disorder [Not Recovered/Not Resolved]
  - Memory impairment [Recovering/Resolving]
  - Fatigue [Recovering/Resolving]
  - Painful erection [Unknown]
  - Herpes virus infection [Unknown]
  - Haemorrhoidal haemorrhage [Unknown]
  - Constipation [Unknown]
  - Prostatitis [Unknown]
  - Pollakiuria [Unknown]
  - Pollakiuria [Unknown]
  - Genital pain [Unknown]
  - Haemorrhoids [Unknown]
  - Liver injury [Unknown]
  - Prepuce redundant [Unknown]
  - Phimosis [Unknown]
